FAERS Safety Report 8305417-0 (Version None)
Quarter: 2012Q2

REPORT INFORMATION
  Report Type: 
  Country: None (occurrence: None)
  Receive Date: 20120423
  Receipt Date: 20120420
  Transmission Date: 20120825
  Serious: Yes (Death, Other)
  Sender: FDA-Public Use
  Company Number: PHHY2012GB033769

PATIENT
  Age: 63 Year
  Sex: Female

DRUGS (5)
  1. TEGRETOL [Concomitant]
     Indication: CONVULSION
     Dosage: 200 MG, BID
     Route: 048
     Dates: start: 20020701
  2. FERROUS SULFATE TAB [Concomitant]
     Indication: ANAEMIA
     Dosage: 200 MG, QD
     Route: 048
  3. WARFARIN SODIUM [Suspect]
     Indication: DEEP VEIN THROMBOSIS
     Route: 048
     Dates: start: 20040901
  4. OLANZAPINE [Concomitant]
     Indication: AGITATION
     Dosage: 2.5 MG, QD
     Route: 048
     Dates: start: 20000601
  5. SIMVASTATIN [Concomitant]
     Indication: CEREBROVASCULAR ACCIDENT
     Dosage: 20 MG, QD
     Route: 048
     Dates: start: 20010901

REACTIONS (6)
  - HAEMORRHAGE [None]
  - MELAENA [None]
  - ABDOMINAL DISTENSION [None]
  - SHOCK [None]
  - INTESTINAL ISCHAEMIA [None]
  - CARDIAC ARREST [None]
